FAERS Safety Report 4905559-3 (Version None)
Quarter: 2006Q1

REPORT INFORMATION
  Report Type: 
  Country: None (occurrence: None)
  Receive Date: 20060203
  Receipt Date: 20060126
  Transmission Date: 20060701
  Serious: Yes (Other)
  Sender: FDA-Public Use
  Company Number: S05-USA-02817-01

PATIENT
  Age: 28 Year
  Sex: Female
  Weight: 59.648 kg

DRUGS (11)
  1. CELEXA [Suspect]
     Indication: POSTPARTUM DEPRESSION
     Dosage: 40 MG QD PO
     Route: 048
     Dates: start: 19991001, end: 20050501
  2. CELEXA [Suspect]
     Indication: POSTPARTUM DEPRESSION
     Dates: start: 20050501, end: 20050501
  3. CELEXA [Suspect]
     Indication: POSTPARTUM DEPRESSION
     Dosage: 10 MG QD PO
     Route: 048
     Dates: start: 20050501, end: 20050101
  4. CELEXA [Suspect]
     Indication: POSTPARTUM DEPRESSION
     Dosage: 40 MG QD PO
     Route: 048
     Dates: start: 20050101
  5. SYNTHROID [Concomitant]
  6. ALLEGRA [Concomitant]
  7. MECLIZINE [Concomitant]
  8. CAL-EST [Concomitant]
  9. NAPROSYN [Concomitant]
  10. OXYCODONE AND ACETAMINOPHEN [Concomitant]
  11. VITAMIN AND MINERAL PRENATAL SUPPLEMENT W/ FOLIC ACID CAP [Concomitant]

REACTIONS (9)
  - ANAEMIA [None]
  - CAESAREAN SECTION [None]
  - DIARRHOEA [None]
  - DRUG EXPOSURE DURING PREGNANCY [None]
  - HYPOTHYROIDISM [None]
  - PREGNANCY [None]
  - ROAD TRAFFIC ACCIDENT [None]
  - THYROID GLAND CANCER [None]
  - VERTIGO [None]
